FAERS Safety Report 9874421 (Version 1)
Quarter: 2014Q1

REPORT INFORMATION
  Report Type: Spontaneous
  Country: BR (occurrence: BR)
  Receive Date: 20140206
  Receipt Date: 20140206
  Transmission Date: 20141002
  Serious: Yes (Other)
  Sender: FDA-Public Use
  Company Number: BR-ROCHE-1343356

PATIENT
  Age: 60 Year
  Sex: Female

DRUGS (7)
  1. XOLAIR [Suspect]
     Indication: HYPERSENSITIVITY
     Route: 065
  2. XOLAIR [Suspect]
     Route: 065
  3. XOLAIR [Suspect]
     Dosage: 2 AMPOULES A MONTH
     Route: 065
     Dates: start: 201211
  4. METICORTEN [Suspect]
     Indication: PRODUCT USED FOR UNKNOWN INDICATION
     Route: 065
  5. SPIRIVA [Concomitant]
     Route: 065
     Dates: start: 2011
  6. MONTELAIR [Concomitant]
     Route: 065
     Dates: start: 2011
  7. RIVOTRIL [Concomitant]
     Route: 065

REACTIONS (12)
  - Respiratory arrest [Unknown]
  - Hiatus hernia [Unknown]
  - Activities of daily living impaired [Unknown]
  - Sleep apnoea syndrome [Unknown]
  - Asthma [Recovering/Resolving]
  - Immunodeficiency [Unknown]
  - Dyspnoea [Unknown]
  - Somnolence [Unknown]
  - Food allergy [Unknown]
  - Pain in extremity [Unknown]
  - Fatigue [Unknown]
  - Off label use [Unknown]
